FAERS Safety Report 7228735-6 (Version None)
Quarter: 2011Q1

REPORT INFORMATION
  Report Type: 
  Country: None (occurrence: None)
  Receive Date: 20110117
  Receipt Date: 20110107
  Transmission Date: 20110831
  Serious: No
  Sender: FDA-Public Use
  Company Number: US-BIOGENIDEC-2011BI001552

PATIENT
  Age: 46 Year
  Sex: Female

DRUGS (1)
  1. TYSABRI [Suspect]
     Indication: MULTIPLE SCLEROSIS
     Route: 042
     Dates: start: 20101111

REACTIONS (6)
  - EAR INFECTION [None]
  - PYREXIA [None]
  - PHARYNGITIS [None]
  - NASOPHARYNGITIS [None]
  - APHASIA [None]
  - VIRAL INFECTION [None]
